FAERS Safety Report 9897751 (Version 2)
Quarter: 2014Q1

REPORT INFORMATION
  Report Type: Spontaneous
  Country: DE (occurrence: DE)
  Receive Date: 20140214
  Receipt Date: 20140214
  Transmission Date: 20141002
  Serious: Yes (Life-Threatening, Hospitalization, Other)
  Sender: FDA-Public Use
  Company Number: DE-CELGENEUS-062-50794-13121561

PATIENT
  Age: 50 Year
  Sex: Male
  Weight: 74.8 kg

DRUGS (1)
  1. VIDAZA [Suspect]
     Indication: ACUTE MYELOID LEUKAEMIA
     Route: 065
     Dates: start: 201210, end: 201211

REACTIONS (6)
  - Sinusitis [Not Recovered/Not Resolved]
  - Periorbital abscess [Not Recovered/Not Resolved]
  - Pneumonia fungal [Unknown]
  - Gastroenteritis clostridial [Unknown]
  - Respiratory syncytial virus infection [Unknown]
  - Enterococcal infection [Unknown]
